FAERS Safety Report 11104279 (Version 1)
Quarter: 2015Q2

REPORT INFORMATION
  Report Type: Spontaneous
  Country: US (occurrence: US)
  Receive Date: 20150511
  Receipt Date: 20150511
  Transmission Date: 20150821
  Serious: No
  Sender: FDA-Public Use
  Company Number: US-BAYER-2015-203964

PATIENT
  Age: 43 Year
  Sex: Male
  Weight: 158.73 kg

DRUGS (1)
  1. ALEVE [Suspect]
     Active Substance: NAPROXEN SODIUM
     Indication: HEADACHE
     Dosage: 1 DF, UNK
     Route: 048
     Dates: start: 20150417

REACTIONS (1)
  - Wrong technique in drug usage process [None]

NARRATIVE: CASE EVENT DATE: 20150417
